FAERS Safety Report 17187661 (Version 1)
Quarter: 2019Q4

REPORT INFORMATION
  Report Type: Report from Study
  Country: None (occurrence: CO)
  Receive Date: 20191221
  Receipt Date: 20191221
  Transmission Date: 20200122
  Serious: Yes (Death)
  Sender: FDA-Public Use
  Company Number: CO-ABBVIE-19K-036-3205317-00

PATIENT
  Age: 80 Year
  Sex: Female

DRUGS (1)
  1. ZEMPLAR [Suspect]
     Active Substance: PARICALCITOL
     Indication: HYPERPARATHYROIDISM SECONDARY
     Route: 042
     Dates: start: 20191115, end: 20191115

REACTIONS (4)
  - Diarrhoea [Not Recovered/Not Resolved]
  - Unevaluable event [Unknown]
  - Death [Fatal]
  - Pain [Not Recovered/Not Resolved]

NARRATIVE: CASE EVENT DATE: 20191130
